FAERS Safety Report 7002502-0 (Version None)
Quarter: 2010Q3

REPORT INFORMATION
  Report Type: 
  Country: None (occurrence: None)
  Receive Date: 20100920
  Receipt Date: 20090908
  Transmission Date: 20110219
  Serious: Yes (Hospitalization)
  Sender: FDA-Public Use
  Company Number: US-ASTRAZENECA-2007UW10147

PATIENT
  Sex: Female
  Weight: 88.5 kg

DRUGS (5)
  1. SEROQUEL [Suspect]
     Indication: DEPRESSION
     Route: 048
     Dates: start: 20030101, end: 20080825
  2. GEODON [Concomitant]
     Dates: start: 20080101
  3. RISPERDAL [Concomitant]
     Dates: start: 20080101
  4. TRILAFON [Concomitant]
     Dates: start: 20070101
  5. TRIAVIL [Concomitant]
     Dates: start: 20070101

REACTIONS (6)
  - BLOOD CHOLESTEROL INCREASED [None]
  - BLOOD TRIGLYCERIDES INCREASED [None]
  - FOOT DEFORMITY [None]
  - HYPERLIPIDAEMIA [None]
  - SUICIDE ATTEMPT [None]
  - TYPE 2 DIABETES MELLITUS [None]
